FAERS Safety Report 12249107 (Version 1)
Quarter: 2016Q2

REPORT INFORMATION
  Report Type: Spontaneous
  Country: US (occurrence: None)
  Receive Date: 20160407
  Receipt Date: 20160407
  Transmission Date: 20160815
  Serious: Yes (Disabling, Other)
  Sender: FDA-Public Use
  Company Number: None

PATIENT
  Age: 62 Year
  Sex: Female
  Weight: 61.24 kg

DRUGS (6)
  1. ACYCLOVIR. [Concomitant]
     Active Substance: ACYCLOVIR
  2. IRON (CARBONLY) [Concomitant]
  3. GENSING [Concomitant]
  4. AMBIEN [Suspect]
     Active Substance: ZOLPIDEM TARTRATE
     Indication: INSOMNIA
     Dosage: 30 TABLET(S) AT BEDTIME TAKEN BY MOUTH
     Route: 048
     Dates: start: 20150416, end: 20150426
  5. GLUCOSAMINE/CHONDROITIN /08437701/ [Concomitant]
     Active Substance: CHONDROITIN SULFATE (BOVINE)\GLUCOSAMINE SULFATE
  6. GABAPENTIN. [Concomitant]
     Active Substance: GABAPENTIN

REACTIONS (19)
  - Nerve injury [None]
  - Peripheral swelling [None]
  - Swelling face [None]
  - Back pain [None]
  - Pain in extremity [None]
  - Dyspnoea [None]
  - Local swelling [None]
  - Disturbance in attention [None]
  - Sensory loss [None]
  - Paraesthesia [None]
  - Heart rate increased [None]
  - Asthenia [None]
  - Impaired work ability [None]
  - Hypoaesthesia [None]
  - Tinnitus [None]
  - Neuralgia [None]
  - Musculoskeletal pain [None]
  - Dizziness [None]
  - Headache [None]

NARRATIVE: CASE EVENT DATE: 20150417
